FAERS Safety Report 7714606 (Version 4)
Quarter: 2017Q3

REPORT INFORMATION
  Report Type: Spontaneous
  Country: AU (occurrence: AU)
  Receive Date: 20101216
  Receipt Date: 20170720
  Transmission Date: 20171128
  Serious: Yes (Death)
  Sender: FDA-Public Use
  Company Number: AU-NAPPMUNDI-GBR-2010-0007492

PATIENT
  Age: 56 Year
  Sex: Female

DRUGS (5)
  1. MORPHINE SULFATE. [Suspect]
     Active Substance: MORPHINE SULFATE
     Indication: PRODUCT USED FOR UNKNOWN INDICATION
  2. TRAMADOL. [Interacting]
     Active Substance: TRAMADOL
  3. PROMETHAZINE [Interacting]
     Active Substance: PROMETHAZINE\PROMETHAZINE HYDROCHLORIDE
  4. METOCLOPRAMIDE. [Interacting]
     Active Substance: METOCLOPRAMIDE
  5. SERTRALINE [Interacting]
     Active Substance: SERTRALINE HYDROCHLORIDE

REACTIONS (3)
  - Death [Fatal]
  - Drug interaction [Fatal]
  - Contraindication to medical treatment [Fatal]
